FAERS Safety Report 8514119-7 (Version None)
Quarter: 2012Q3

REPORT INFORMATION
  Report Type: 
  Country: None (occurrence: None)
  Receive Date: 20120717
  Receipt Date: 20120702
  Transmission Date: 20120928
  Serious: No
  Sender: FDA-Public Use
  Company Number: US-009507513-1207USA000840

PATIENT

DRUGS (11)
  1. VITAMIN E [Concomitant]
     Dosage: 1000 IU, UNK
  2. ATENOLOL [Concomitant]
     Dosage: 100 MG, UNK
  3. PEG-INTRON [Suspect]
     Dosage: 230 MICROGRAM, QW, 0.5 ML
     Route: 058
  4. PHENERGAN HCL [Concomitant]
     Dosage: 25 MG, UNK
  5. CHOLECALCIFEROL [Concomitant]
     Dosage: 1000 IU, UNK
  6. LORAZEPAM [Concomitant]
     Dosage: 1 MG, UNK
  7. PRILOSEC [Concomitant]
     Dosage: 10 MG, UNK
  8. MELATONIN [Concomitant]
     Dosage: 1 MG, UNK
  9. NORVASC [Concomitant]
     Dosage: 5 MG, UNK
  10. SYNTHROID [Concomitant]
     Dosage: 88 MICROGRAM, UNK
  11. VITAMINS (UNSPECIFIED) [Concomitant]

REACTIONS (1)
  - MALAISE [None]
